FAERS Safety Report 5480123-9 (Version None)
Quarter: 2007Q4

REPORT INFORMATION
  Report Type: 
  Country: None (occurrence: None)
  Receive Date: 20071009
  Receipt Date: 20071001
  Transmission Date: 20080405
  Serious: Yes (Other)
  Sender: FDA-Public Use
  Company Number: PHBS2007RU16303

PATIENT
  Sex: Female

DRUGS (6)
  1. MIACALCIN [Suspect]
     Dosage: 1 ML, QD
  2. MIACALCIN [Suspect]
     Dosage: 1 ML, QOD
  3. MIACALCIN [Suspect]
     Dosage: 0.5 ML
     Dates: start: 20070922
  4. CALCIUM SANDOZ [Concomitant]
  5. ALPHA D3 [Concomitant]
  6. IRON SUPPLEMENTS [Concomitant]

REACTIONS (6)
  - BLOOD PRESSURE INCREASED [None]
  - EPISTAXIS [None]
  - ERYTHEMA [None]
  - FACE OEDEMA [None]
  - NAUSEA [None]
  - POLLAKIURIA [None]
